FAERS Safety Report 15657297 (Version 1)
Quarter: 2018Q4

REPORT INFORMATION
  Report Type: Spontaneous
  Country: FR (occurrence: FR)
  Receive Date: 20181126
  Receipt Date: 20181126
  Transmission Date: 20190205
  Serious: Yes (Death)
  Sender: FDA-Public Use
  Company Number: FR-SA-2018SA172425

PATIENT
  Age: 77 Year
  Sex: Male
  Weight: 82.2 kg

DRUGS (2)
  1. LOVENOX [Suspect]
     Active Substance: ENOXAPARIN SODIUM
     Indication: PROPHYLAXIS
     Route: 065
     Dates: start: 20180501, end: 20180503
  2. PREVISCAN [FLUINDIONE] [Suspect]
     Active Substance: FLUINDIONE
     Indication: PROPHYLAXIS
     Dosage: 20 MG
     Route: 048
     Dates: end: 20180504

REACTIONS (3)
  - Haematuria [Fatal]
  - Gingival bleeding [Fatal]
  - Epistaxis [Fatal]

NARRATIVE: CASE EVENT DATE: 20180507
